FAERS Safety Report 18650523 (Version 1)
Quarter: 2020Q4

REPORT INFORMATION
  Report Type: Spontaneous
  Country: US (occurrence: US)
  Receive Date: 20201222
  Receipt Date: 20201222
  Transmission Date: 20210114
  Serious: No
  Sender: FDA-Public Use
  Company Number: US-BRISTOL-MYERS SQUIBB COMPANY-BMS-2020-110014

PATIENT
  Sex: Female
  Weight: 122.9 kg

DRUGS (1)
  1. COUMADIN [Suspect]
     Active Substance: WARFARIN SODIUM
     Indication: PULMONARY THROMBOSIS
     Dosage: 1 TABLET MONDAY AND FRIDAY 1 TABLET AND HALF OTHER DAYS
     Route: 065
     Dates: start: 20200613

REACTIONS (6)
  - Alopecia [Unknown]
  - Headache [Unknown]
  - Malaise [Unknown]
  - Intentional product misuse [Unknown]
  - Muscle tightness [Unknown]
  - Swelling [Unknown]
